FAERS Safety Report 9094033 (Version 1)
Quarter: 2013Q1

REPORT INFORMATION
  Report Type: Spontaneous
  Country: US (occurrence: None)
  Receive Date: 20130122
  Receipt Date: 20130122
  Transmission Date: 20140127
  Serious: Yes (Death)
  Sender: FDA-Public Use
  Company Number: DSA_61942_2013

PATIENT
  Age: 47 Year
  Sex: Male

DRUGS (6)
  1. DILTIAZEM HYDROCHLORIDE [Suspect]
     Dates: start: 2011, end: 2011
  2. TRAZODONE HYDROCHLORIDE [Suspect]
     Dates: start: 2011, end: 2011
  3. HEPARIN [Suspect]
     Dates: start: 2011, end: 2011
  4. COCAINE [Suspect]
     Dates: start: 2011, end: 2011
  5. CANNABIS SATIVA SUBSP. INDICA TOP [Suspect]
     Dates: start: 2011, end: 2011
  6. DOXYLAMINE [Suspect]
     Dates: start: 2011, end: 2011

REACTIONS (3)
  - Respiratory arrest [None]
  - Cardiac arrest [None]
  - Toxicity to various agents [None]
